FAERS Safety Report 4396512-X (Version None)
Quarter: 2004Q2

REPORT INFORMATION
  Report Type: 
  Country: None (occurrence: None)
  Receive Date: 20040621
  Receipt Date: 20031201
  Transmission Date: 20050107
  Serious: Yes (Other)
  Sender: FDA-Public Use
  Company Number: USA-2003-0011194

PATIENT
  Age: 38 Year
  Sex: Female

DRUGS (3)
  1. OXYCONTIN [Suspect]
     Indication: PAIN
     Dosage: ORAL
     Route: 048
  2. TORADOL [Concomitant]
  3. DARVOCET-N 100 [Concomitant]

REACTIONS (1)
  - DRUG DEPENDENCE [None]
